FAERS Safety Report 5242477-8 (Version None)
Quarter: 2007Q1

REPORT INFORMATION
  Report Type: 
  Country: None (occurrence: None)
  Receive Date: 20070214
  Receipt Date: 20070201
  Transmission Date: 20070707
  Serious: Yes (Other)
  Sender: FDA-Public Use
  Company Number: 234102K06USA

PATIENT
  Age: 36 Year
  Sex: Female

DRUGS (3)
  1. REBIF [Suspect]
     Indication: MULTIPLE SCLEROSIS
     Dosage: 44 MCG, 3 IN 1 WEEKS, SUBCUTANEOUS
     Route: 058
     Dates: start: 20030903, end: 20051201
  2. NOVANTRONE [Concomitant]
     Indication: MULTIPLE SCLEROSIS
     Dates: start: 20020101
  3. METHOTREXATE [Suspect]

REACTIONS (1)
  - ACUTE PROMYELOCYTIC LEUKAEMIA [None]
